FAERS Safety Report 7490239-3 (Version None)
Quarter: 2011Q2

REPORT INFORMATION
  Report Type: 
  Country: None (occurrence: None)
  Receive Date: 20110519
  Receipt Date: 20110516
  Transmission Date: 20111010
  Serious: No
  Sender: FDA-Public Use
  Company Number: US-PFIZER INC-2011105710

PATIENT
  Sex: Female

DRUGS (2)
  1. LIPITOR [Suspect]
     Dosage: 20 MG, 1X/DAY
  2. PREMPRO [Suspect]
     Dosage: UNK

REACTIONS (2)
  - DRUG EFFECT DECREASED [None]
  - FATIGUE [None]
